FAERS Safety Report 19989928 (Version 9)
Quarter: 2023Q1

REPORT INFORMATION
  Report Type: Report from Study
  Country: CA (occurrence: CA)
  Receive Date: 20211025
  Receipt Date: 20230220
  Transmission Date: 20230417
  Serious: Yes (Hospitalization, Other)
  Sender: FDA-Public Use
  Company Number: CA-BAUSCH-BL-2021-020378

PATIENT
  Sex: Female
  Weight: 69.932 kg

DRUGS (17)
  1. CONTRAVE [Suspect]
     Active Substance: BUPROPION HYDROCHLORIDE\NALTREXONE HYDROCHLORIDE
     Indication: Weight control
     Dosage: 8MG/90MG, 1 TAB Q AM; TABLET (EXTENDEDRELEASE)
     Route: 048
     Dates: start: 20210509, end: 20210515
  2. CONTRAVE [Suspect]
     Active Substance: BUPROPION HYDROCHLORIDE\NALTREXONE HYDROCHLORIDE
     Dosage: 8MG/90MG, 1 TAB Q AM, 1 TAB Q PM
     Route: 048
     Dates: start: 20210516, end: 20210522
  3. CONTRAVE [Suspect]
     Active Substance: BUPROPION HYDROCHLORIDE\NALTREXONE HYDROCHLORIDE
     Dosage: 8MG/90MG, 2 TAB Q AM, 1 TAB Q PM (1 IN 12 HR)
     Route: 048
     Dates: start: 20210523, end: 20210529
  4. CONTRAVE [Suspect]
     Active Substance: BUPROPION HYDROCHLORIDE\NALTREXONE HYDROCHLORIDE
     Dosage: 8MG/90MG, 2 TABLETS IN MORNING, 2 TABLETS IN EVENING
     Route: 048
     Dates: start: 20210530
  5. CONTRAVE [Suspect]
     Active Substance: BUPROPION HYDROCHLORIDE\NALTREXONE HYDROCHLORIDE
     Dosage: 8MG/90MG 1 TAB QAM
     Route: 048
     Dates: start: 20220608, end: 20220614
  6. CONTRAVE [Suspect]
     Active Substance: BUPROPION HYDROCHLORIDE\NALTREXONE HYDROCHLORIDE
     Dosage: 8MG/90MG 1 TAB QAM, 1 TAB QPM
     Route: 048
     Dates: start: 20220615, end: 20220621
  7. CONTRAVE [Suspect]
     Active Substance: BUPROPION HYDROCHLORIDE\NALTREXONE HYDROCHLORIDE
     Dosage: 8MG/90MG 2 TAB QAM, 1 TAB QPM
     Route: 048
     Dates: start: 20220622
  8. CONTRAVE [Suspect]
     Active Substance: BUPROPION HYDROCHLORIDE\NALTREXONE HYDROCHLORIDE
     Dosage: 8MG/90MG 1 TAB QAM
     Route: 048
     Dates: start: 20220921, end: 20220927
  9. CONTRAVE [Suspect]
     Active Substance: BUPROPION HYDROCHLORIDE\NALTREXONE HYDROCHLORIDE
     Dosage: 8MG/90MG 1 TAB QAM, 1 TAB QPM
     Route: 048
     Dates: start: 20220928, end: 20221004
  10. CONTRAVE [Suspect]
     Active Substance: BUPROPION HYDROCHLORIDE\NALTREXONE HYDROCHLORIDE
     Dosage: 8MG/90MG 2 TAB Q AM, 1 TAB Q PM (1 IN 12 HR)
     Route: 048
     Dates: start: 20221004, end: 202210
  11. CONTRAVE [Suspect]
     Active Substance: BUPROPION HYDROCHLORIDE\NALTREXONE HYDROCHLORIDE
     Dosage: 8MG/90MG 2 TAB Q AM, 2 TAB Q PM
     Route: 048
     Dates: start: 20221012
  12. OZEMPIC [Suspect]
     Active Substance: SEMAGLUTIDE
     Indication: Weight control
     Dosage: SOLUTION SUBCUTAENOUS (1.25 MG, 1 IN 1 D)
     Route: 048
     Dates: start: 202010
  13. OZEMPIC [Suspect]
     Active Substance: SEMAGLUTIDE
     Dosage: 1.5 MG, SC, WEEKLY (1.5 MG,1 IN 1 WK)
     Route: 058
  14. TYLENOL [Suspect]
     Active Substance: ACETAMINOPHEN
     Indication: Pain
     Dosage: PRN, TYLENOL 4 (1 IN 1 AS REQUIRED)
     Route: 048
     Dates: start: 20230129, end: 20230203
  15. CYMBALTA [Concomitant]
     Active Substance: DULOXETINE HYDROCHLORIDE
     Indication: Depression
     Dosage: 240 MG (120 MG, 1 IN 12 HR)
     Route: 048
  16. ATIVAN [Concomitant]
     Active Substance: LORAZEPAM
     Indication: Sleep disorder
     Dosage: HS (BEDTIME) (1 IN 1 D)
     Route: 048
  17. SYNTHROID [Concomitant]
     Active Substance: LEVOTHYROXINE SODIUM
     Indication: Hypothyroidism
     Dosage: 150 MCG, 1 IN 1 D
     Route: 048
     Dates: start: 1994

REACTIONS (32)
  - Autoimmune thyroiditis [Not Recovered/Not Resolved]
  - Condition aggravated [Not Recovered/Not Resolved]
  - Klebsiella infection [Recovered/Resolved]
  - Abdominoplasty [Unknown]
  - COVID-19 [Recovered/Resolved]
  - Urinary tract infection [Recovered/Resolved]
  - Fibromyalgia [Not Recovered/Not Resolved]
  - Proteinuria [Recovered/Resolved]
  - Crystalluria [Recovered/Resolved]
  - Cortisol increased [Recovered/Resolved]
  - Blood insulin decreased [Recovered/Resolved]
  - Specific gravity urine abnormal [Recovered/Resolved]
  - Ketonuria [Unknown]
  - Hepatitis B surface antibody positive [Unknown]
  - Anaemia [Not Recovered/Not Resolved]
  - Gastrointestinal disorder [Unknown]
  - Post procedural infection [Recovered/Resolved]
  - Ear infection [Recovered/Resolved]
  - Fall [Recovered/Resolved]
  - Food craving [Not Recovered/Not Resolved]
  - Laryngitis [Not Recovered/Not Resolved]
  - Illness [Unknown]
  - Balance disorder [Recovered/Resolved]
  - Hepatic enzyme increased [Not Recovered/Not Resolved]
  - Influenza [Recovered/Resolved]
  - Constipation [Not Recovered/Not Resolved]
  - Headache [Not Recovered/Not Resolved]
  - Vomiting [Recovered/Resolved]
  - Nausea [Recovered/Resolved]
  - Hypersensitivity [Unknown]
  - Intentional product use issue [Unknown]
  - Contraindicated product administered [Unknown]

NARRATIVE: CASE EVENT DATE: 20210101
